FAERS Safety Report 10755365 (Version 1)
Quarter: 2015Q1

REPORT INFORMATION
  Report Type: Spontaneous
  Country: US (occurrence: None)
  Receive Date: 20150121
  Receipt Date: 20150121
  Transmission Date: 20150721
  Serious: Yes (Hospitalization)
  Sender: FDA-Public Use
  Company Number: 1000070613

PATIENT
  Age: 67 Year
  Sex: Female

DRUGS (6)
  1. BENBRO PROBIOTIC (PROBIOTIC) [Concomitant]
  2. ATORVASTATIN (ATORVASTATIN) [Concomitant]
     Active Substance: ATORVASTATIN
  3. XARELTO [Suspect]
     Active Substance: RIVAROXABAN
     Indication: DEEP VEIN THROMBOSIS
  4. VITAMIN (NOS) (VITAMIN NOS) [Concomitant]
  5. BYSTOLIC [Suspect]
     Active Substance: NEBIVOLOL HYDROCHLORIDE
     Indication: HYPERTENSION
  6. LOSARTAN (LOSARTAN) [Suspect]
     Active Substance: LOSARTAN
     Indication: HYPERTENSION

REACTIONS (4)
  - Syncope [None]
  - Asthenia [None]
  - Blood iron decreased [None]
  - Haemoglobin abnormal [None]

NARRATIVE: CASE EVENT DATE: 2014
